FAERS Safety Report 8971042 (Version 1)
Quarter: 2012Q4

REPORT INFORMATION
  Report Type: 
  Country: US (occurrence: US)
  Receive Date: 20121218
  Receipt Date: 20121218
  Transmission Date: 20130627
  Serious: No
  Sender: FDA-Public Use
  Company Number: US-BRISTOL-MYERS SQUIBB COMPANY-16476756

PATIENT
  Age: 37 Year
  Sex: Female
  Weight: 68.03 kg

DRUGS (2)
  1. ABILIFY [Suspect]
     Indication: MIGRAINE
     Dosage: stopped Abilify in Sep2011 
restarted Abilify in Jan2012.
     Dates: start: 201107
  2. ABILIFY [Suspect]
     Indication: DEPRESSION
     Dosage: stopped Abilify in Sep2011 
restarted Abilify in Jan2012.
     Dates: start: 201107

REACTIONS (3)
  - Weight increased [Unknown]
  - Depression [Unknown]
  - Migraine [Unknown]
